FAERS Safety Report 6676842-9 (Version None)
Quarter: 2010Q2

REPORT INFORMATION
  Report Type: 
  Country: None (occurrence: None)
  Receive Date: 20100408
  Receipt Date: 20100408
  Transmission Date: 20101027
  Serious: Yes (Other)
  Sender: FDA-Public Use
  Company Number: None

PATIENT
  Sex: Male
  Weight: 69.8539 kg

DRUGS (1)
  1. ZETIA 10MG. MERCH/SCHERING [Suspect]
     Indication: MYOCARDIAL INFARCTION
     Dosage: 1 PILL 1 A DAY MOUTH
     Route: 048

REACTIONS (3)
  - ARTHRALGIA [None]
  - EYE HAEMORRHAGE [None]
  - PAIN IN EXTREMITY [None]
